FAERS Safety Report 4818376-X (Version None)
Quarter: 2005Q4

REPORT INFORMATION
  Report Type: 
  Country: None (occurrence: None)
  Receive Date: 20051031
  Receipt Date: 20051019
  Transmission Date: 20060501
  Serious: Yes (Other)
  Sender: FDA-Public Use
  Company Number: 2005144090

PATIENT
  Age: 17 Year
  Sex: Male
  Weight: 72.5755 kg

DRUGS (1)
  1. DRAMAMINE [Suspect]
     Indication: EUPHORIC MOOD
     Dosage: 12 TABLETS ONCE, ORAL
     Route: 048
     Dates: start: 20051019, end: 20051019

REACTIONS (2)
  - ABNORMAL BEHAVIOUR [None]
  - INTENTIONAL DRUG MISUSE [None]
